FAERS Safety Report 17860507 (Version 1)
Quarter: 2020Q2

REPORT INFORMATION
  Report Type: Other
  Country: IT (occurrence: IT)
  Receive Date: 20200604
  Receipt Date: 20200604
  Transmission Date: 20200714
  Serious: Yes (Hospitalization)
  Sender: FDA-Public Use
  Company Number: IT-ALSI-202000194

PATIENT
  Age: 66 Year
  Sex: Male

DRUGS (3)
  1. OXYGEN. [Suspect]
     Active Substance: OXYGEN
     Indication: INTERVERTEBRAL DISC PROTRUSION
     Route: 030
  2. OZONE [Suspect]
     Active Substance: OZONE
     Route: 030
  3. LIDOCAINE. [Concomitant]
     Active Substance: LIDOCAINE

REACTIONS (2)
  - Posterior reversible encephalopathy syndrome [Recovered/Resolved]
  - Off label use [Recovered/Resolved]
